FAERS Safety Report 9835485 (Version 1)
Quarter: 2014Q1

REPORT INFORMATION
  Report Type: Spontaneous
  Country: US (occurrence: US)
  Receive Date: 20140122
  Receipt Date: 20140122
  Transmission Date: 20141002
  Serious: No
  Sender: FDA-Public Use
  Company Number: US-BRISTOL-MYERS SQUIBB COMPANY-19686245

PATIENT
  Age: 67 Year
  Sex: Female
  Weight: 52.15 kg

DRUGS (9)
  1. ELIQUIS [Suspect]
     Indication: ATRIAL FIBRILLATION
  2. PROZAC [Concomitant]
  3. DILTIAZEM HCL [Concomitant]
  4. POTASSIUM [Concomitant]
  5. LASIX [Concomitant]
  6. DEPAKOTE [Concomitant]
  7. NEURONTIN [Concomitant]
  8. HYDROXYZINE [Concomitant]
  9. TRAMADOL [Concomitant]

REACTIONS (2)
  - Rash pruritic [Recovered/Resolved]
  - Headache [Unknown]
